FAERS Safety Report 20166798 (Version 1)
Quarter: 2021Q4

REPORT INFORMATION
  Report Type: Spontaneous
  Country: CN (occurrence: CN)
  Receive Date: 20211209
  Receipt Date: 20211209
  Transmission Date: 20220303
  Serious: Yes (Other)
  Sender: FDA-Public Use
  Company Number: CN-PFIZER INC-202101699126

PATIENT
  Age: 71 Year
  Sex: Male
  Weight: 57 kg

DRUGS (2)
  1. ZYVOX [Suspect]
     Active Substance: LINEZOLID
     Indication: Pleural effusion
     Dosage: 600 MG, 2X/DAY
     Route: 041
     Dates: start: 20210830, end: 20210831
  2. MEROPENEM [Suspect]
     Active Substance: MEROPENEM
     Indication: Pleural effusion
     Dosage: 0.5 G, 3X/DAY
     Route: 041
     Dates: start: 20210830, end: 20210831

REACTIONS (3)
  - Renal injury [Recovering/Resolving]
  - Hypertension [Recovering/Resolving]
  - Anaemia [Recovering/Resolving]

NARRATIVE: CASE EVENT DATE: 20210831
